FAERS Safety Report 24016052 (Version 1)
Quarter: 2024Q2

REPORT INFORMATION
  Report Type: Report from Study
  Country: US (occurrence: US)
  Receive Date: 20240626
  Receipt Date: 20240626
  Transmission Date: 20240716
  Serious: Yes (Hospitalization)
  Sender: FDA-Public Use
  Company Number: US-TAKEDA-2024TUS063143

PATIENT
  Sex: Male

DRUGS (2)
  1. MARIBAVIR [Suspect]
     Active Substance: MARIBAVIR
     Indication: Lung transplant
     Dosage: 400 MILLIGRAM, BID
     Route: 048
     Dates: start: 20240606
  2. TRAMADOL HYDROCHLORIDE [Suspect]
     Active Substance: TRAMADOL HYDROCHLORIDE
     Indication: Product used for unknown indication
     Dosage: UNK
     Route: 065

REACTIONS (12)
  - COVID-19 [Unknown]
  - Muscle spasms [Unknown]
  - Drug hypersensitivity [Unknown]
  - Asthenia [Unknown]
  - Pleural effusion [Unknown]
  - Ear pain [Unknown]
  - Toothache [Unknown]
  - Headache [Recovered/Resolved]
  - Fatigue [Unknown]
  - Taste disorder [Unknown]
  - Diarrhoea [Unknown]
  - Product dose omission in error [Unknown]
